FAERS Safety Report 12457609 (Version 1)
Quarter: 2016Q2

REPORT INFORMATION
  Report Type: Spontaneous
  Country: CA (occurrence: CA)
  Receive Date: 20160610
  Receipt Date: 20160610
  Transmission Date: 20160815
  Serious: Yes (Life-Threatening)
  Sender: FDA-Public Use
  Company Number: CA-ASTRAZENECA-2016SE62040

PATIENT
  Age: 51 Year
  Sex: Male

DRUGS (2)
  1. VIRAMUNE XR [Interacting]
     Active Substance: NEVIRAPINE
     Route: 048
  2. LOSEC [Suspect]
     Active Substance: OMEPRAZOLE
     Route: 048

REACTIONS (4)
  - Pyrexia [Unknown]
  - Drug interaction [Unknown]
  - Influenza like illness [Unknown]
  - Rash [Unknown]
